FAERS Safety Report 17285628 (Version 2)
Quarter: 2020Q1

REPORT INFORMATION
  Report Type: Spontaneous
  Country: JP (occurrence: JP)
  Receive Date: 20200117
  Receipt Date: 20200206
  Transmission Date: 20200409
  Serious: Yes (Other)
  Sender: FDA-Public Use
  Company Number: JP-ROCHE-2522772

PATIENT
  Age: 42 Year
  Sex: Male

DRUGS (4)
  1. POLARAMINE [Concomitant]
     Active Substance: DEXCHLORPHENIRAMINE MALEATE
     Route: 065
     Dates: start: 20191216
  2. TAMIFLU [Suspect]
     Active Substance: OSELTAMIVIR PHOSPHATE
     Indication: INFLUENZA
     Dosage: MOST RECENT DOSE ON 21/DEC/2019
     Route: 048
     Dates: start: 20191216, end: 20191221
  3. MUCODYNE [Concomitant]
     Active Substance: CARBOCYSTEINE
     Route: 065
     Dates: start: 20191216
  4. CLOPERASTINE [Concomitant]
     Active Substance: CLOPERASTINE
     Route: 065
     Dates: start: 20191216

REACTIONS (3)
  - Melaena [Recovered/Resolved]
  - Abdominal pain [Recovered/Resolved]
  - Abdominal distension [Unknown]

NARRATIVE: CASE EVENT DATE: 20191220
